FAERS Safety Report 23753956 (Version 1)
Quarter: 2024Q2

REPORT INFORMATION
  Report Type: Spontaneous
  Country: US (occurrence: US)
  Receive Date: 20240417
  Receipt Date: 20240417
  Transmission Date: 20240716
  Serious: Yes (Hospitalization)
  Sender: FDA-Public Use
  Company Number: US-ABBVIE-5722765

PATIENT

DRUGS (1)
  1. RINVOQ [Suspect]
     Active Substance: UPADACITINIB
     Indication: Arthritis
     Route: 048

REACTIONS (6)
  - Pneumonia aspiration [Unknown]
  - Vomiting [Unknown]
  - Nausea [Unknown]
  - Haemoglobin decreased [Unknown]
  - Pyrexia [Unknown]
  - Haemorrhage [Unknown]
